FAERS Safety Report 19535326 (Version 1)
Quarter: 2021Q3

REPORT INFORMATION
  Report Type: Spontaneous
  Country: US (occurrence: US)
  Receive Date: 20210713
  Receipt Date: 20210713
  Transmission Date: 20211014
  Serious: No
  Sender: FDA-Public Use
  Company Number: None

PATIENT
  Age: 52 Year
  Sex: Female

DRUGS (1)
  1. JAKAFI [Suspect]
     Active Substance: RUXOLITINIB
     Dates: start: 20210420

REACTIONS (3)
  - Drug dispensed to wrong patient [None]
  - Wrong patient received product [None]
  - Adverse drug reaction [None]

NARRATIVE: CASE EVENT DATE: 20210713
